FAERS Safety Report 5064729-7 (Version None)
Quarter: 2006Q3

REPORT INFORMATION
  Report Type: 
  Country: None (occurrence: None)
  Receive Date: 20060728
  Receipt Date: 20060720
  Transmission Date: 20061208
  Serious: Yes (Disabling)
  Sender: FDA-Public Use
  Company Number: JP-ROCHE-456780

PATIENT
  Age: 29 Year
  Sex: Female

DRUGS (1)
  1. TAMIFLU [Suspect]
     Route: 048

REACTIONS (2)
  - MYELITIS [None]
  - QUADRIPLEGIA [None]
